FAERS Safety Report 11499837 (Version 1)
Quarter: 2015Q3

REPORT INFORMATION
  Report Type: Spontaneous
  Country: US (occurrence: US)
  Receive Date: 20150914
  Receipt Date: 20150914
  Transmission Date: 20151125
  Serious: No
  Sender: FDA-Public Use
  Company Number: US-TEVA-548990USA

PATIENT
  Sex: Female

DRUGS (1)
  1. GLYBURIDE. [Suspect]
     Active Substance: GLYBURIDE

REACTIONS (3)
  - Malaise [Unknown]
  - Dizziness [Unknown]
  - Feeling abnormal [Unknown]
